FAERS Safety Report 5809016-1 (Version None)
Quarter: 2008Q3

REPORT INFORMATION
  Report Type: 
  Country: None (occurrence: None)
  Receive Date: 20080710
  Receipt Date: 20080710
  Transmission Date: 20090109
  Serious: Yes (Other)
  Sender: FDA-Public Use
  Company Number: None

PATIENT
  Age: 60 Year
  Sex: Male
  Weight: 85.2762 kg

DRUGS (2)
  1. LEVAQUIN [Suspect]
     Indication: URINARY TRACT INFECTION BACTERIAL
     Dosage: AFTER IV, 1 PILL ONCE A DAY PO
     Route: 042
     Dates: start: 20080601, end: 20080609
  2. CIPRO [Suspect]
     Indication: URINARY TRACT INFECTION BACTERIAL
     Dosage: 1 PILL TWICE DAILY PO
     Route: 048
     Dates: start: 20080618, end: 20080628

REACTIONS (14)
  - ABDOMINAL PAIN UPPER [None]
  - DELIRIUM [None]
  - ECONOMIC PROBLEM [None]
  - FLUID RETENTION [None]
  - IMPAIRED WORK ABILITY [None]
  - INCOHERENT [None]
  - INCORRECT DRUG ADMINISTRATION DURATION [None]
  - INSOMNIA [None]
  - MALAISE [None]
  - OEDEMA PERIPHERAL [None]
  - PAIN IN EXTREMITY [None]
  - TREMOR [None]
  - URINARY TRACT INFECTION [None]
  - WRONG TECHNIQUE IN DRUG USAGE PROCESS [None]
